FAERS Safety Report 17417059 (Version 1)
Quarter: 2020Q1

REPORT INFORMATION
  Report Type: Spontaneous
  Country: US (occurrence: US)
  Receive Date: 20200214
  Receipt Date: 20200214
  Transmission Date: 20200409
  Serious: Yes (Other)
  Sender: FDA-Public Use
  Company Number: US-MYLANLABS-2020M1015749

PATIENT
  Sex: Female
  Weight: 67 kg

DRUGS (1)
  1. ALPRAZOLAM TABLETS, USP [Suspect]
     Active Substance: ALPRAZOLAM
     Indication: PRODUCT USED FOR UNKNOWN INDICATION
     Dosage: UNK
     Dates: end: 201908

REACTIONS (4)
  - Recalled product administered [Not Recovered/Not Resolved]
  - Adverse event [Not Recovered/Not Resolved]
  - Diverticulitis [Not Recovered/Not Resolved]
  - Malaise [Not Recovered/Not Resolved]
